FAERS Safety Report 21586464 (Version 1)
Quarter: 2022Q4

REPORT INFORMATION
  Report Type: Report from Study
  Country: AR (occurrence: AR)
  Receive Date: 20221112
  Receipt Date: 20221112
  Transmission Date: 20230112
  Serious: Yes (Other)
  Sender: FDA-Public Use
  Company Number: AR-AMGEN-ARGSL2022130016

PATIENT
  Age: 37 Year
  Sex: Male

DRUGS (1)
  1. VECTIBIX [Suspect]
     Active Substance: PANITUMUMAB
     Indication: Colorectal cancer
     Dosage: UNK, Q2WK (EVERY 14 DAYS)
     Route: 065
     Dates: start: 20220719

REACTIONS (13)
  - Pulmonary oedema [Unknown]
  - Abdominal pain [Recovering/Resolving]
  - Dyspnoea [Unknown]
  - Fatigue [Recovering/Resolving]
  - Rash [Not Recovered/Not Resolved]
  - Vomiting [Recovering/Resolving]
  - Bronchial disorder [Unknown]
  - Haemoptysis [Unknown]
  - Abdominal discomfort [Not Recovered/Not Resolved]
  - Lung disorder [Recovering/Resolving]
  - Back disorder [Recovering/Resolving]
  - Arthropathy [Recovering/Resolving]
  - Abdominal pain lower [Unknown]

NARRATIVE: CASE EVENT DATE: 20220101
